FAERS Safety Report 12442481 (Version 3)
Quarter: 2016Q4

REPORT INFORMATION
  Report Type: Spontaneous
  Country: JP (occurrence: JP)
  Receive Date: 20160607
  Receipt Date: 20161227
  Transmission Date: 20170207
  Serious: Yes (Hospitalization)
  Sender: FDA-Public Use
  Company Number: JP-PFIZER INC-2016284213

PATIENT
  Age: 80 Year
  Sex: Male

DRUGS (2)
  1. INLYTA [Suspect]
     Active Substance: AXITINIB
     Indication: RENAL CELL CARCINOMA
     Dosage: 10 MG, DAILY
     Route: 048
     Dates: start: 201508
  2. INLYTA [Suspect]
     Active Substance: AXITINIB
     Dosage: UNK
     Route: 048
     Dates: end: 201609

REACTIONS (4)
  - Neoplasm progression [Unknown]
  - Pyrexia [Unknown]
  - Fall [Unknown]
  - Fracture [Recovered/Resolved]

NARRATIVE: CASE EVENT DATE: 20160523
